FAERS Safety Report 8107880-7 (Version None)
Quarter: 2012Q1

REPORT INFORMATION
  Report Type: 
  Country: None (occurrence: None)
  Receive Date: 20120202
  Receipt Date: 20120123
  Transmission Date: 20120608
  Serious: Yes (Hospitalization)
  Sender: FDA-Public Use
  Company Number: US-PFIZER INC-2010051845

PATIENT
  Sex: Male
  Weight: 72.1 kg

DRUGS (4)
  1. PERCOCET [Concomitant]
     Indication: PAIN
  2. PREDNISONE TAB [Suspect]
     Dosage: 5 MG, 2X/DAY
     Route: 048
     Dates: start: 20100104
  3. PREDNISONE TAB [Suspect]
     Indication: PROSTATE CANCER
     Dosage: 10 MG, SINGLE
     Route: 048
     Dates: start: 20100104, end: 20100104
  4. PLACEBO [Suspect]
     Indication: PROSTATE CANCER
     Dosage: 1X/DAY
     Route: 048
     Dates: start: 20100104

REACTIONS (1)
  - MUSCULAR WEAKNESS [None]
